FAERS Safety Report 5348032-3 (Version None)
Quarter: 2007Q2

REPORT INFORMATION
  Report Type: 
  Country: None (occurrence: None)
  Receive Date: 20070606
  Receipt Date: 20070523
  Transmission Date: 20071010
  Serious: Yes (Hospitalization)
  Sender: FDA-Public Use
  Company Number: US-JNJFOC-20070401902

PATIENT
  Sex: Female
  Weight: 63.5 kg

DRUGS (4)
  1. ORTHO EVRA [Suspect]
     Indication: CONTRACEPTION
     Route: 062
  2. DURAGESIC-100 [Concomitant]
     Indication: PAIN
  3. PHENERGAN HCL [Concomitant]
     Indication: NAUSEA
  4. VICODIN [Concomitant]
     Indication: PAIN

REACTIONS (1)
  - GASTROINTESTINAL ISCHAEMIA [None]
